FAERS Safety Report 14210270 (Version 3)
Quarter: 2017Q4

REPORT INFORMATION
  Report Type: Spontaneous
  Country: IT (occurrence: IT)
  Receive Date: 20171121
  Receipt Date: 20171227
  Transmission Date: 20180321
  Serious: Yes (Other)
  Sender: FDA-Public Use
  Company Number: IT-JNJFOC-20171115859

PATIENT
  Age: 24 Year
  Sex: Male

DRUGS (1)
  1. SERENASE [Suspect]
     Active Substance: HALOPERIDOL
     Indication: PRODUCT USED FOR UNKNOWN INDICATION
     Route: 048
     Dates: start: 20170818, end: 20170818

REACTIONS (5)
  - Incorrect dose administered [Unknown]
  - Self-medication [Unknown]
  - Dyskinesia [Recovered/Resolved]
  - Drug abuse [Recovered/Resolved]
  - Dystonia [Recovered/Resolved]

NARRATIVE: CASE EVENT DATE: 20170818
